FAERS Safety Report 25120314 (Version 1)
Quarter: 2025Q1

REPORT INFORMATION
  Report Type: Spontaneous
  Country: US (occurrence: None)
  Receive Date: 20250325
  Receipt Date: 20250325
  Transmission Date: 20250409
  Serious: Yes (Other)
  Sender: FDA-CTU
  Company Number: None

PATIENT
  Age: 32 Year
  Sex: Female
  Weight: 50.4 kg

DRUGS (1)
  1. SPIRONOLACTONE [Suspect]
     Active Substance: SPIRONOLACTONE
     Indication: Acne
     Dosage: OTHER QUANTITY : 2 TABLET(S);?FREQUENCY : AT BEDTIME;?
     Route: 048
     Dates: start: 20241008, end: 20241010

REACTIONS (7)
  - Palpitations [None]
  - Chills [None]
  - Tremor [None]
  - Musculoskeletal stiffness [None]
  - Restlessness [None]
  - Peripheral venous disease [None]
  - Discomfort [None]

NARRATIVE: CASE EVENT DATE: 20241010
